FAERS Safety Report 5851192-9 (Version None)
Quarter: 2008Q3

REPORT INFORMATION
  Report Type: 
  Country: None (occurrence: None)
  Receive Date: 20080731
  Receipt Date: 20080425
  Transmission Date: 20090109
  Serious: No
  Sender: FDA-Public Use
  Company Number: 2007PV030845

PATIENT
  Age: 57 Year
  Sex: Male

DRUGS (7)
  1. EXENATIDE(EXENATIDE) PEN,DISPOSABLE [Suspect]
     Indication: TYPE 2 DIABETES MELLITUS
     Dosage: SEE IMAGE
     Route: 058
  2. AMARYL [Concomitant]
  3. METFORMIN HCL [Concomitant]
  4. JUNUVEA [Concomitant]
  5. ACTOS [Concomitant]
  6. TESTOSTERONE [Concomitant]
  7. HERBAL PREPARATION [Concomitant]

REACTIONS (9)
  - DRUG EFFECT DECREASED [None]
  - ERECTILE DYSFUNCTION [None]
  - HYPERCHLORHYDRIA [None]
  - LOSS OF LIBIDO [None]
  - NAUSEA [None]
  - SOMNOLENCE [None]
  - VOMITING [None]
  - WEIGHT DECREASED [None]
  - WEIGHT INCREASED [None]
